FAERS Safety Report 26140544 (Version 1)
Quarter: 2025Q4

REPORT INFORMATION
  Report Type: Spontaneous
  Country: EU (occurrence: EU)
  Receive Date: 20251210
  Receipt Date: 20251210
  Transmission Date: 20260118
  Serious: Yes (Other)
  Sender: ELI LILLY AND COMPANY
  Company Number: EU-ELI_LILLY_AND_COMPANY-ES202512005967

PATIENT
  Age: 78 Year
  Sex: Male

DRUGS (1)
  1. TRULICITY [Suspect]
     Active Substance: DULAGLUTIDE
     Indication: Blood glucose abnormal
     Dosage: 1.5 MG, UNKNOWN
     Route: 065

REACTIONS (3)
  - Herpes ophthalmic [Unknown]
  - Optic nerve disorder [Unknown]
  - Blindness unilateral [Unknown]
